FAERS Safety Report 8933380 (Version 1)
Quarter: 2012Q4

REPORT INFORMATION
  Report Type: 
  Country: CL (occurrence: CL)
  Receive Date: 20121129
  Receipt Date: 20121129
  Transmission Date: 20130627
  Serious: Yes (Hospitalization)
  Sender: FDA-Public Use
  Company Number: CL-PAR PHARMACEUTICAL, INC-2012SCPR004737

PATIENT

DRUGS (1)
  1. PROPRANOLOL [Suspect]
     Indication: EYE HAEMANGIOMA
     Dosage: 20 mg/kg, Unknown
     Route: 048

REACTIONS (4)
  - Euphoric mood [Unknown]
  - Restlessness [Unknown]
  - Accidental overdose [Unknown]
  - Insomnia [Unknown]
